FAERS Safety Report 13005220 (Version 2)
Quarter: 2017Q3

REPORT INFORMATION
  Report Type: Spontaneous
  Country: US (occurrence: US)
  Receive Date: 20161207
  Receipt Date: 20170928
  Transmission Date: 20171127
  Serious: No
  Sender: FDA-Public Use
  Company Number: US-TEVA-697871USA

PATIENT
  Age: 78 Year
  Sex: Female
  Weight: 61.29 kg

DRUGS (2)
  1. CICLOPIROX. [Suspect]
     Active Substance: CICLOPIROX
     Dates: start: 20160529
  2. CICLOPIROX. [Suspect]
     Active Substance: CICLOPIROX
     Dates: start: 201605

REACTIONS (1)
  - Alopecia [Recovering/Resolving]

NARRATIVE: CASE EVENT DATE: 201605
